FAERS Safety Report 24166961 (Version 1)
Quarter: 2024Q3

REPORT INFORMATION
  Report Type: Spontaneous
  Country: US (occurrence: US)
  Receive Date: 20240802
  Receipt Date: 20240802
  Transmission Date: 20241016
  Serious: No
  Sender: ENDO
  Company Number: ENDB23-03903

PATIENT
  Sex: Male

DRUGS (25)
  1. EDEX [Suspect]
     Active Substance: ALPROSTADIL
     Indication: Erectile dysfunction
     Dosage: 20 MICROGRAM, UNKNOWN (THIRD TIME)
     Route: 051
     Dates: start: 2023
  2. EDEX [Suspect]
     Active Substance: ALPROSTADIL
     Indication: Erectile dysfunction
     Dosage: 20 MICROGRAM, UNKNOWN (THIRD TIME)
     Route: 051
     Dates: start: 2023
  3. EDEX [Suspect]
     Active Substance: ALPROSTADIL
     Indication: Erectile dysfunction
     Dosage: 20 MICROGRAM, UNKNOWN (THIRD TIME)
     Route: 051
     Dates: start: 2023
  4. EDEX [Suspect]
     Active Substance: ALPROSTADIL
     Indication: Erectile dysfunction
     Dosage: 20 MICROGRAM, UNKNOWN (THIRD TIME)
     Route: 051
     Dates: start: 2023
  5. EDEX [Suspect]
     Active Substance: ALPROSTADIL
     Indication: Erectile dysfunction
     Dosage: 20 MICROGRAM, UNKNOWN (THIRD TIME)
     Route: 051
     Dates: start: 2023
  6. EDEX [Suspect]
     Active Substance: ALPROSTADIL
     Dosage: 20 MICROGRAM, UNKNOWN (FIFTH TIME)
     Route: 051
     Dates: start: 20230930
  7. EDEX [Suspect]
     Active Substance: ALPROSTADIL
     Dosage: 20 MICROGRAM, UNKNOWN (FIFTH TIME)
     Route: 051
     Dates: start: 20230930
  8. EDEX [Suspect]
     Active Substance: ALPROSTADIL
     Dosage: 20 MICROGRAM, UNKNOWN (FIFTH TIME)
     Route: 051
     Dates: start: 20230930
  9. EDEX [Suspect]
     Active Substance: ALPROSTADIL
     Dosage: 20 MICROGRAM, UNKNOWN (FIFTH TIME)
     Route: 051
     Dates: start: 20230930
  10. EDEX [Suspect]
     Active Substance: ALPROSTADIL
     Dosage: 20 MICROGRAM, UNKNOWN (FIFTH TIME)
     Route: 051
     Dates: start: 20230930
  11. EDEX [Suspect]
     Active Substance: ALPROSTADIL
     Dosage: 20 MICROGRAM, UNKNOWN (FIRST TIME)
     Route: 051
     Dates: start: 2023
  12. EDEX [Suspect]
     Active Substance: ALPROSTADIL
     Dosage: 20 MICROGRAM, UNKNOWN (FIRST TIME)
     Route: 051
     Dates: start: 2023
  13. EDEX [Suspect]
     Active Substance: ALPROSTADIL
     Dosage: 20 MICROGRAM, UNKNOWN (FIRST TIME)
     Route: 051
     Dates: start: 2023
  14. EDEX [Suspect]
     Active Substance: ALPROSTADIL
     Dosage: 20 MICROGRAM, UNKNOWN (FIRST TIME)
     Route: 051
     Dates: start: 2023
  15. EDEX [Suspect]
     Active Substance: ALPROSTADIL
     Dosage: 20 MICROGRAM, UNKNOWN (FIRST TIME)
     Route: 051
     Dates: start: 2023
  16. EDEX [Suspect]
     Active Substance: ALPROSTADIL
     Dosage: 20 MICROGRAM, UNKNOWN (SECOND TIME)
     Route: 051
     Dates: start: 2023
  17. EDEX [Suspect]
     Active Substance: ALPROSTADIL
     Dosage: 20 MICROGRAM, UNKNOWN (SECOND TIME)
     Route: 051
     Dates: start: 2023
  18. EDEX [Suspect]
     Active Substance: ALPROSTADIL
     Dosage: 20 MICROGRAM, UNKNOWN (SECOND TIME)
     Route: 051
     Dates: start: 2023
  19. EDEX [Suspect]
     Active Substance: ALPROSTADIL
     Dosage: 20 MICROGRAM, UNKNOWN (SECOND TIME)
     Route: 051
     Dates: start: 2023
  20. EDEX [Suspect]
     Active Substance: ALPROSTADIL
     Dosage: 20 MICROGRAM, UNKNOWN (SECOND TIME)
     Route: 051
     Dates: start: 2023
  21. EDEX [Suspect]
     Active Substance: ALPROSTADIL
     Dosage: 20 MICROGRAM, UNKNOWN (FOURTH TIME)
     Route: 051
     Dates: start: 2023
  22. EDEX [Suspect]
     Active Substance: ALPROSTADIL
     Dosage: 20 MICROGRAM, UNKNOWN (FOURTH TIME)
     Route: 051
     Dates: start: 2023
  23. EDEX [Suspect]
     Active Substance: ALPROSTADIL
     Dosage: 20 MICROGRAM, UNKNOWN (FOURTH TIME)
     Route: 051
     Dates: start: 2023
  24. EDEX [Suspect]
     Active Substance: ALPROSTADIL
     Dosage: 20 MICROGRAM, UNKNOWN (FOURTH TIME)
     Route: 051
     Dates: start: 2023
  25. EDEX [Suspect]
     Active Substance: ALPROSTADIL
     Dosage: 20 MICROGRAM, UNKNOWN (FOURTH TIME)
     Route: 051
     Dates: start: 2023

REACTIONS (1)
  - Therapeutic product effect incomplete [Unknown]

NARRATIVE: CASE EVENT DATE: 20230101
